FAERS Safety Report 20196910 (Version 1)
Quarter: 2021Q4

REPORT INFORMATION
  Report Type: Report from Study
  Country: US (occurrence: US)
  Receive Date: 20211217
  Receipt Date: 20211217
  Transmission Date: 20220304
  Serious: Yes (Other)
  Sender: FDA-Public Use
  Company Number: US-ABBVIE-21K-163-4180178-00

PATIENT
  Sex: Male
  Weight: 85.806 kg

DRUGS (1)
  1. VENCLEXTA [Suspect]
     Active Substance: VENETOCLAX
     Indication: Product used for unknown indication
     Route: 048
     Dates: start: 20211105

REACTIONS (10)
  - Cardiac pacemaker insertion [Unknown]
  - Weight increased [Unknown]
  - Peripheral swelling [Unknown]
  - Bone pain [Unknown]
  - Arthralgia [Unknown]
  - Constipation [Unknown]
  - Haemoglobin decreased [Unknown]
  - Blood potassium increased [Unknown]
  - Nausea [Not Recovered/Not Resolved]
  - Red blood cell count decreased [Unknown]

NARRATIVE: CASE EVENT DATE: 20210101
